FAERS Safety Report 6558236-X (Version None)
Quarter: 2010Q1

REPORT INFORMATION
  Report Type: 
  Country: None (occurrence: None)
  Receive Date: 20100127
  Receipt Date: 20100127
  Transmission Date: 20100710
  Serious: Yes (Hospitalization)
  Sender: FDA-Public Use
  Company Number: None

PATIENT
  Sex: Female
  Weight: 55.3388 kg

DRUGS (1)
  1. RANITIDINE [Suspect]
     Indication: RHINITIS ALLERGIC
     Dosage: 1 TAB BID PO
     Route: 048
     Dates: start: 20090501, end: 20090901

REACTIONS (3)
  - ASTHENIA [None]
  - DIARRHOEA [None]
  - PARAESTHESIA [None]
